FAERS Safety Report 10033994 (Version 1)
Quarter: 2014Q1

REPORT INFORMATION
  Report Type: Spontaneous
  Country: GB (occurrence: None)
  Receive Date: 20140320
  Receipt Date: 20140320
  Transmission Date: 20141002
  Serious: Yes (Life-Threatening)
  Sender: FDA-Public Use
  Company Number: AUR-APL-2014-02870

PATIENT
  Age: 54 Year
  Sex: Male
  Weight: 81 kg

DRUGS (3)
  1. CIPROFLOXACIN [Suspect]
     Indication: PRODUCT USED FOR UNKNOWN INDICATION
  2. BETAMETHASONE VALERATE [Concomitant]
  3. RAMIPRIL (RAMIPRIL) [Concomitant]

REACTIONS (5)
  - Cardiac arrest [None]
  - Paraesthesia oral [None]
  - Muscle spasms [None]
  - Depressed mood [None]
  - Anxiety [None]
